FAERS Safety Report 6970233-9 (Version None)
Quarter: 2010Q3

REPORT INFORMATION
  Report Type: 
  Country: None (occurrence: None)
  Receive Date: 20100903
  Receipt Date: 20100817
  Transmission Date: 20110219
  Serious: Yes (Hospitalization, Other)
  Sender: FDA-Public Use
  Company Number: 2010P1000711

PATIENT
  Age: 78 Year
  Sex: Male
  Weight: 80.7403 kg

DRUGS (5)
  1. WARFARIN SODIUM [Suspect]
     Indication: ATRIAL FIBRILLATION
     Dosage: 5 MG;TUE/WED/THU/SAT/SUN; PO,  7.5 MG; MON/FRI; PO
     Route: 048
     Dates: start: 20070301, end: 20100731
  2. WARFARIN SODIUM [Suspect]
     Indication: ATRIAL FIBRILLATION
     Dosage: 5 MG;TUE/WED/THU/SAT/SUN; PO,  7.5 MG; MON/FRI; PO
     Route: 048
     Dates: start: 20100804, end: 20100810
  3. DILTIAEKM [Concomitant]
  4. VITAMIN B-12 [Concomitant]
  5. TERAZOSIN HCL [Concomitant]

REACTIONS (8)
  - ARTHRALGIA [None]
  - BURNING SENSATION [None]
  - CARDIAC VALVE DISEASE [None]
  - DIZZINESS [None]
  - HALLUCINATION [None]
  - HEART RATE INCREASED [None]
  - TREMOR [None]
  - VISION BLURRED [None]
